FAERS Safety Report 10613939 (Version 1)
Quarter: 2014Q4

REPORT INFORMATION
  Report Type: Spontaneous
  Country: US (occurrence: US)
  Receive Date: 20141128
  Receipt Date: 20141128
  Transmission Date: 20150529
  Serious: No
  Sender: FDA-Public Use
  Company Number: US-GLAXOSMITHKLINE-A1078774A

PATIENT

DRUGS (2)
  1. WELLBUTRIN SR [Suspect]
     Active Substance: BUPROPION HYDROCHLORIDE
     Indication: BIPOLAR DISORDER
     Route: 048
     Dates: start: 201310
  2. LITHIUM [Concomitant]
     Active Substance: LITHIUM CARBONATE

REACTIONS (8)
  - Tremor [Unknown]
  - Wrong technique in drug usage process [Unknown]
  - Salivary hypersecretion [Unknown]
  - Abdominal discomfort [Unknown]
  - Dyspepsia [Unknown]
  - Abdominal pain upper [Unknown]
  - Dry mouth [Unknown]
  - Vision blurred [Unknown]

NARRATIVE: CASE EVENT DATE: 201310
